FAERS Safety Report 18600393 (Version 1)
Quarter: 2020Q4

REPORT INFORMATION
  Report Type: Spontaneous
  Country: US (occurrence: US)
  Receive Date: 20201209
  Receipt Date: 20201209
  Transmission Date: 20210114
  Serious: Yes (Other)
  Sender: FDA-Public Use
  Company Number: None

PATIENT
  Age: 62 Year
  Sex: Female
  Weight: 62.6 kg

DRUGS (13)
  1. INDERAL [Concomitant]
     Active Substance: PROPRANOLOL HYDROCHLORIDE
  2. MYSOLINE [Concomitant]
     Active Substance: PRIMIDONE
  3. RECLAST [Suspect]
     Active Substance: ZOLEDRONIC ACID
     Indication: OSTEOPOROSIS
     Dosage: ?          OTHER FREQUENCY:ANNUAL FOR 3 YEARS;OTHER ROUTE:INFUSION?
     Dates: start: 20201008, end: 20201008
  4. LEVOTHYROXINE. [Concomitant]
     Active Substance: LEVOTHYROXINE
  5. VIT D [Concomitant]
     Active Substance: VITAMIN D NOS
  6. BIOTIN [Concomitant]
     Active Substance: BIOTIN
  7. ATORVASTATIN [Concomitant]
     Active Substance: ATORVASTATIN
  8. KEFLEX [Concomitant]
     Active Substance: CEPHALEXIN
  9. STOOL SOFTENER (DOCUSATE) [Concomitant]
     Active Substance: DOCUSATE
  10. GABAPENTIN. [Concomitant]
     Active Substance: GABAPENTIN
  11. CALCIUM [Concomitant]
     Active Substance: CALCIUM
  12. VITAMIN C [Concomitant]
     Active Substance: ASCORBIC ACID
  13. PRO-BIOTIC ^ONE A-DAY^ VITAMIN [Concomitant]

REACTIONS (2)
  - Pain [None]
  - Herpes zoster [None]

NARRATIVE: CASE EVENT DATE: 20201020
